FAERS Safety Report 18065339 (Version 2)
Quarter: 2020Q3

REPORT INFORMATION
  Report Type: Spontaneous
  Country: US (occurrence: US)
  Receive Date: 20200724
  Receipt Date: 20200813
  Transmission Date: 20201103
  Serious: Yes (Other)
  Sender: FDA-Public Use
  Company Number: US-009507513-2007USA007707

PATIENT
  Sex: Female
  Weight: 80 kg

DRUGS (2)
  1. BRIDION [Suspect]
     Active Substance: SUGAMMADEX
     Dosage: 200 MILLIGRAM, ONCE
  2. ROCURONIUM BROMIDE. [Suspect]
     Active Substance: ROCURONIUM BROMIDE
     Dosage: 50 MG, DOSED THROUGHOUT THE SURGERY AS NEEDED FOR A TOTAL 120 MG

REACTIONS (4)
  - Recurrence of neuromuscular blockade [Recovered/Resolved]
  - Respiratory arrest [Recovered/Resolved]
  - Unresponsive to stimuli [Recovered/Resolved]
  - Ill-defined disorder [Recovered/Resolved]
